FAERS Safety Report 9451436 (Version 1)
Quarter: 2013Q3

REPORT INFORMATION
  Report Type: Report from Study
  Country: US (occurrence: US)
  Receive Date: 20130809
  Receipt Date: 20130809
  Transmission Date: 20140515
  Serious: Yes (Other)
  Sender: FDA-Public Use
  Company Number: US-ABBOTT-13P-163-1131274-00

PATIENT
  Sex: Male
  Weight: 77.18 kg

DRUGS (3)
  1. HUMIRA [Suspect]
     Indication: PSORIATIC ARTHROPATHY
     Dates: start: 2008, end: 2013
  2. ANTIBIOTICS [Suspect]
     Indication: TOOTH INFECTION
     Dates: start: 201307, end: 201307
  3. CLARITIN-D [Concomitant]
     Indication: HYPERSENSITIVITY

REACTIONS (10)
  - Eye disorder [Not Recovered/Not Resolved]
  - Metamorphopsia [Not Recovered/Not Resolved]
  - Vision blurred [Not Recovered/Not Resolved]
  - Tooth disorder [Recovered/Resolved]
  - Motion sickness [Not Recovered/Not Resolved]
  - Urticaria [Recovered/Resolved]
  - Pruritus allergic [Recovered/Resolved]
  - Tooth infection [Not Recovered/Not Resolved]
  - Injection site scar [Not Recovered/Not Resolved]
  - Device breakage [Not Recovered/Not Resolved]
